FAERS Safety Report 13327432 (Version 1)
Quarter: 2017Q1

REPORT INFORMATION
  Report Type: Spontaneous
  Country: US (occurrence: US)
  Receive Date: 20170313
  Receipt Date: 20170313
  Transmission Date: 20170428
  Serious: No
  Sender: FDA-Public Use
  Company Number: US-JNJFOC-20161226945

PATIENT
  Age: 73 Year
  Sex: Female
  Weight: 61.24 kg

DRUGS (3)
  1. BIOTIN [Concomitant]
     Active Substance: BIOTIN
     Indication: HAIR DISORDER
     Dosage: DOSAGE 1 PILL??INTERVAL OFF AND ON 1 YEAR
     Route: 065
  2. WOMENS ROGAINE UNSCENTED [Suspect]
     Active Substance: MINOXIDIL
     Route: 061
  3. WOMENS ROGAINE UNSCENTED [Suspect]
     Active Substance: MINOXIDIL
     Indication: ALOPECIA
     Dosage: 1 CAP FULL
     Route: 061

REACTIONS (3)
  - Overdose [Recovered/Resolved]
  - Hair colour changes [Recovered/Resolved]
  - Skin irritation [Recovered/Resolved]
